FAERS Safety Report 5486807-0 (Version None)
Quarter: 2007Q4

REPORT INFORMATION
  Report Type: 
  Country: None (occurrence: None)
  Receive Date: 20071016
  Receipt Date: 20071011
  Transmission Date: 20080405
  Serious: Yes (Other)
  Sender: FDA-Public Use
  Company Number: TR-AVENTIS-200714787EU

PATIENT
  Age: 77 Year
  Sex: Female

DRUGS (3)
  1. ENOXAPARIN SODIUM [Suspect]
     Indication: THROMBOSIS PROPHYLAXIS
  2. RAMIPRIL [Concomitant]
  3. ACETYLSALICYLATE [Concomitant]

REACTIONS (1)
  - PANCYTOPENIA [None]
